FAERS Safety Report 22976062 (Version 2)
Quarter: 2023Q4

REPORT INFORMATION
  Report Type: Other
  Country: US (occurrence: None)
  Receive Date: 20230925
  Receipt Date: 20231004
  Transmission Date: 20240110
  Serious: Yes (Other)
  Sender: FDA-Public Use
  Company Number: US-ROCHE-3397783

PATIENT
  Age: 80 Year
  Sex: Female
  Weight: 52.21 kg

DRUGS (2)
  1. BONIVA [Suspect]
     Active Substance: IBANDRONATE SODIUM
     Indication: Osteoporosis
     Route: 065
  2. BONIVA [Suspect]
     Active Substance: IBANDRONATE SODIUM
     Indication: Osteoporosis
     Route: 065

REACTIONS (11)
  - Pain [Not Recovered/Not Resolved]
  - Oral infection [Not Recovered/Not Resolved]
  - Gingival disorder [Not Recovered/Not Resolved]
  - Eating disorder [Unknown]
  - Musculoskeletal pain [Unknown]
  - Osteomyelitis [Unknown]
  - Tooth loss [Unknown]
  - Oral disorder [Unknown]
  - Bone fragmentation [Unknown]
  - Dysarthria [Unknown]
  - Mastication disorder [Unknown]

NARRATIVE: CASE EVENT DATE: 20230101
